FAERS Safety Report 19269797 (Version 1)
Quarter: 2021Q2

REPORT INFORMATION
  Report Type: Spontaneous
  Country: DE (occurrence: DE)
  Receive Date: 20210518
  Receipt Date: 20210518
  Transmission Date: 20210717
  Serious: Yes (Death, Life-Threatening, Hospitalization, Other)
  Sender: FDA-Public Use
  Company Number: DE-ACCORD-225100

PATIENT
  Age: 88 Year
  Sex: Female

DRUGS (1)
  1. METHOTREXATE. [Suspect]
     Active Substance: METHOTREXATE
     Indication: PSORIASIS
     Dosage: 15 MG PER WEEK

REACTIONS (10)
  - Leukopenia [Fatal]
  - Acute kidney injury [Fatal]
  - Stomatitis [Fatal]
  - Vulvitis [Fatal]
  - Gastrointestinal ulcer [Fatal]
  - Investigation noncompliance [Fatal]
  - Multiple organ dysfunction syndrome [Fatal]
  - Toxicity to various agents [Fatal]
  - Contraindicated product administered [Fatal]
  - Thrombocytopenia [Fatal]
